FAERS Safety Report 10271885 (Version 1)
Quarter: 2014Q3

REPORT INFORMATION
  Report Type: Spontaneous
  Country: IN (occurrence: IN)
  Receive Date: 20140702
  Receipt Date: 20140702
  Transmission Date: 20150326
  Serious: Yes (Other)
  Sender: FDA-Public Use
  Company Number: PHHY2014IN078204

PATIENT
  Age: 32 Year
  Sex: Female

DRUGS (7)
  1. TIMOLOL [Concomitant]
     Active Substance: TIMOLOL
     Indication: ANGLE CLOSURE GLAUCOMA
     Route: 061
  2. MANNITOL. [Concomitant]
     Active Substance: MANNITOL
     Indication: ANGLE CLOSURE GLAUCOMA
     Dosage: 1.5 G/KG, UNK
  3. TOPIROL [Suspect]
     Active Substance: TOPIRAMATE
     Indication: MIGRAINE
     Dosage: 25 MG, BID
  4. RIZACT [Concomitant]
     Indication: MIGRAINE
     Dosage: 10 MG, QD
  5. ACETAZOLAMIDE. [Suspect]
     Active Substance: ACETAZOLAMIDE
     Dosage: 250 MG, TID
     Route: 048
  6. COTRIMOXAZOLE [Suspect]
     Active Substance: SULFAMETHOXAZOLE\TRIMETHOPRIM
     Indication: PYREXIA
     Route: 048
  7. MIGRABETA [Concomitant]
     Indication: MIGRAINE
     Dosage: 20 MG, BID

REACTIONS (12)
  - Ocular hyperaemia [Recovering/Resolving]
  - Vision blurred [Recovering/Resolving]
  - Eye pain [Recovering/Resolving]
  - Hypopyon [Recovering/Resolving]
  - Cataract [Unknown]
  - Iris atrophy [Unknown]
  - Iris adhesions [Unknown]
  - Iridocyclitis [Recovering/Resolving]
  - Choroidal effusion [Recovering/Resolving]
  - Flat anterior chamber of eye [Recovering/Resolving]
  - Drug hypersensitivity [Recovering/Resolving]
  - Photophobia [Recovering/Resolving]
